FAERS Safety Report 9251985 (Version 1)
Quarter: 2013Q2

REPORT INFORMATION
  Report Type: Spontaneous
  Country: DE (occurrence: DE)
  Receive Date: 20130424
  Receipt Date: 20130424
  Transmission Date: 20140414
  Serious: Yes (Death)
  Sender: FDA-Public Use
  Company Number: DE-BAYER-2013-048472

PATIENT
  Age: 91 Year
  Sex: Female

DRUGS (17)
  1. TAVOR [LORAZEPAM] [Suspect]
     Dosage: 2 MG, UNK
     Route: 048
     Dates: start: 20120920, end: 20120922
  2. TRUXAL [Suspect]
     Dosage: 60 MG, UNK
     Route: 048
     Dates: start: 20120922
  3. RAMIPRIL [Concomitant]
     Dosage: 2.5 MG, UNK
     Route: 048
     Dates: end: 20120922
  4. BISOPROLOL [Concomitant]
     Dosage: 2.5 MG, UNK
     Route: 048
     Dates: end: 20120913
  5. BISOPROLOL [Concomitant]
     Dosage: 5 MG, UNK
     Route: 048
     Dates: start: 20120914, end: 20120922
  6. ALLOPURINOL [Concomitant]
     Dosage: 150 MG, UNK
     Route: 048
     Dates: end: 20120922
  7. OMEPRAZOL [Concomitant]
     Dosage: 20 MG, UNK
     Route: 048
     Dates: end: 20120911
  8. PANTOPRAZOLE [Concomitant]
     Dosage: 20 MG, UNK
     Route: 048
     Dates: start: 20120912, end: 20120922
  9. METAMIZOL [Concomitant]
     Dosage: 1500 MG, UNK
     Route: 048
     Dates: end: 20120922
  10. FUROSEMID [Concomitant]
     Dosage: 120 MG, UNK
     Route: 048
     Dates: start: 20120912, end: 20120922
  11. FUROSEMID [Concomitant]
     Dosage: 80 MG, UNK
     Route: 048
     Dates: end: 20120911
  12. INSULIN [Concomitant]
     Dosage: 18 IU, UNK
     Route: 058
     Dates: end: 20120922
  13. ACETYLSALICYLIC ACID [Concomitant]
     Dosage: 100 MG, UNK
     Route: 048
     Dates: end: 20120922
  14. CIPROFLOXACIN [Suspect]
     Dosage: 500 MG, UNK
     Route: 048
     Dates: start: 20120914, end: 20120922
  15. ZYPREXA [Suspect]
     Dosage: 5 MG, UNK
     Route: 048
     Dates: start: 20120917, end: 20120920
  16. ZYPREXA [Suspect]
     Dosage: 10 MG, UNK
     Route: 048
     Dates: start: 20120921, end: 20120922
  17. TAVOR [LORAZEPAM] [Suspect]
     Dosage: 3 MG, UNK
     Route: 048
     Dates: start: 20120914, end: 20120919

REACTIONS (7)
  - Restlessness [None]
  - Aggression [None]
  - Tachycardia [None]
  - Delirium [None]
  - Atrial fibrillation [None]
  - Cardiomegaly [None]
  - Death [Fatal]
